FAERS Safety Report 7781940-2 (Version None)
Quarter: 2011Q3

REPORT INFORMATION
  Report Type: 
  Country: None (occurrence: None)
  Receive Date: 20110927
  Receipt Date: 20110923
  Transmission Date: 20111222
  Serious: Yes (Hospitalization)
  Sender: FDA-Public Use
  Company Number: US-PFIZER INC-2011228182

PATIENT

DRUGS (1)
  1. GEODON [Suspect]
     Dosage: 240 MG, 1X/DAY

REACTIONS (3)
  - ARRHYTHMIA [None]
  - HYPERTENSION [None]
  - INTENTIONAL OVERDOSE [None]
